FAERS Safety Report 5743830-6 (Version None)
Quarter: 2008Q2

REPORT INFORMATION
  Report Type: 
  Country: None (occurrence: None)
  Receive Date: 20080519
  Receipt Date: 20080519
  Transmission Date: 20081010
  Serious: Yes (Hospitalization)
  Sender: FDA-Public Use
  Company Number: None

PATIENT
  Age: 44 Year
  Sex: Male
  Weight: 108.8633 kg

DRUGS (2)
  1. NIASPAN [Suspect]
     Indication: BLOOD TRIGLYCERIDES INCREASED
     Dosage: 500MG 2 PER DAY PO
     Route: 048
     Dates: start: 20080412, end: 20080415
  2. NIASPAN [Suspect]
     Indication: HIGH DENSITY LIPOPROTEIN DECREASED
     Dosage: 500MG 2 PER DAY PO
     Route: 048
     Dates: start: 20080412, end: 20080415

REACTIONS (4)
  - ERYTHEMA [None]
  - FEELING HOT [None]
  - INCORRECT DOSE ADMINISTERED [None]
  - TREMOR [None]
